FAERS Safety Report 15543993 (Version 4)
Quarter: 2019Q1

REPORT INFORMATION
  Report Type: Spontaneous
  Country: JP (occurrence: JP)
  Receive Date: 20181023
  Receipt Date: 20190223
  Transmission Date: 20190417
  Serious: Yes (Hospitalization, Other)
  Sender: FDA-Public Use
  Company Number: JP-AMGEN-JPNSP2018148912

PATIENT
  Age: 71 Year
  Sex: Male
  Weight: 54.8 kg

DRUGS (8)
  1. FLUOROURACIL. [Suspect]
     Active Substance: FLUOROURACIL
     Indication: SMALL INTESTINE CARCINOMA
     Dosage: 3974.4 MG, Q2WEEKS
     Route: 042
     Dates: start: 20180926
  2. LEVOFOLINATE [Suspect]
     Active Substance: LEVOLEUCOVORIN CALCIUM
     Indication: SMALL INTESTINE CARCINOMA
     Dosage: 331.2 MG, Q2WEEKS
     Route: 041
     Dates: start: 20180926
  3. ALOXI [Concomitant]
     Active Substance: PALONOSETRON HYDROCHLORIDE
     Dosage: 0.75 MG, Q2WEEKS
     Route: 041
     Dates: start: 20180926, end: 20180926
  4. MINOCYCLINE HYDROCHLORIDE. [Concomitant]
     Active Substance: MINOCYCLINE HYDROCHLORIDE
     Dosage: 50 MG, BID
     Route: 048
     Dates: start: 20180926
  5. IRINOTECAN HYDROCHLORIDE. [Suspect]
     Active Substance: IRINOTECAN HYDROCHLORIDE
     Indication: SMALL INTESTINE CARCINOMA
     Dosage: 248.4 MG, Q2WEEKS
     Route: 041
     Dates: start: 20180926, end: 20180926
  6. IRINOTECAN HYDROCHLORIDE. [Suspect]
     Active Substance: IRINOTECAN HYDROCHLORIDE
     Dosage: 198.72 MG, Q2WEEKS
     Route: 041
     Dates: start: 20181017
  7. VECTIBIX [Suspect]
     Active Substance: PANITUMUMAB
     Indication: SMALL INTESTINE CARCINOMA
     Dosage: 333.9 MG, Q2WK
     Route: 041
     Dates: start: 20180926
  8. DEXART [Concomitant]
     Active Substance: DEXAMETHASONE SODIUM PHOSPHATE
     Dosage: 6.6 MG, Q2WEEKS
     Route: 041
     Dates: start: 20180926, end: 20180926

REACTIONS (4)
  - Off label use [Unknown]
  - Condition aggravated [Recovering/Resolving]
  - Febrile neutropenia [Recovered/Resolved]
  - Cholangitis [Recovering/Resolving]

NARRATIVE: CASE EVENT DATE: 20180926
